FAERS Safety Report 8288908-0 (Version None)
Quarter: 2012Q2

REPORT INFORMATION
  Report Type: 
  Country: None (occurrence: None)
  Receive Date: 20120412
  Receipt Date: 20120410
  Transmission Date: 20120825
  Serious: Yes (Hospitalization, Other)
  Sender: FDA-Public Use
  Company Number: ADR-2011-11283

PATIENT
  Age: 56 Year
  Sex: Male

DRUGS (1)
  1. LIORESAL [Suspect]
     Indication: MUSCLE SPASTICITY
     Dosage: SEE B5 MCG, DAILY, INTRAVENOUS
     Route: 042

REACTIONS (4)
  - PAIN IN EXTREMITY [None]
  - FIBROUS DYSPLASIA OF BONE [None]
  - NEOPLASM [None]
  - COMPUTERISED TOMOGRAM ABNORMAL [None]
